FAERS Safety Report 16760007 (Version 2)
Quarter: 2019Q3

REPORT INFORMATION
  Report Type: Report from Study
  Country: BR (occurrence: BR)
  Receive Date: 20190830
  Receipt Date: 20190830
  Transmission Date: 20191005
  Serious: Yes (Other)
  Sender: FDA-Public Use
  Company Number: PHHY2019BR198300

PATIENT
  Age: 75 Year
  Sex: Female

DRUGS (2)
  1. LOSARTAN POTASSIUM. [Suspect]
     Active Substance: LOSARTAN POTASSIUM
     Indication: PRODUCT USED FOR UNKNOWN INDICATION
     Dosage: 1 DF, UNK
     Route: 065
  2. COSENTYX [Suspect]
     Active Substance: SECUKINUMAB
     Indication: PRODUCT USED FOR UNKNOWN INDICATION
     Dosage: UNK
     Route: 065
     Dates: start: 20190428

REACTIONS (31)
  - Drug-induced liver injury [Unknown]
  - Fall [Unknown]
  - Gait disturbance [Unknown]
  - Orthostatic hypertension [Unknown]
  - Dizziness [Unknown]
  - Orthostatic hypotension [Unknown]
  - Dry mouth [Unknown]
  - Balance disorder [Unknown]
  - Blood pressure decreased [Unknown]
  - Infection [Unknown]
  - Back pain [Unknown]
  - Urinary incontinence [Unknown]
  - Hypoaesthesia [Unknown]
  - Oral pain [Unknown]
  - Ageusia [Unknown]
  - Tongue dry [Unknown]
  - Liver disorder [Unknown]
  - Malaise [Unknown]
  - Dysstasia [Unknown]
  - Noninfective gingivitis [Unknown]
  - Cystitis [Unknown]
  - Abdominal pain [Unknown]
  - Ingrowing nail [Unknown]
  - Gingival injury [Unknown]
  - Eye pain [Unknown]
  - Blood pressure fluctuation [Unknown]
  - Nail infection [Unknown]
  - Gingival erythema [Unknown]
  - Toxicity to various agents [Unknown]
  - Limb injury [Unknown]
  - Dysgeusia [Unknown]

NARRATIVE: CASE EVENT DATE: 20190715
